FAERS Safety Report 4508769-2 (Version None)
Quarter: 2004Q4

REPORT INFORMATION
  Report Type: 
  Country: None (occurrence: None)
  Receive Date: 20041123
  Receipt Date: 20040721
  Transmission Date: 20050328
  Serious: Yes (Other)
  Sender: FDA-Public Use
  Company Number: US-GLAXOSMITHKLINE-A0519217A

PATIENT
  Age: 32 Year
  Sex: Female
  Weight: 90.9 kg

DRUGS (2)
  1. WELLBUTRIN [Suspect]
     Indication: DEPRESSION
     Route: 048
     Dates: start: 20040620, end: 20040626
  2. NO CONCURRENT MEDICATION [Concomitant]

REACTIONS (5)
  - ANGIONEUROTIC OEDEMA [None]
  - ARTHRALGIA [None]
  - PARAESTHESIA [None]
  - RASH [None]
  - SERUM SICKNESS [None]
